FAERS Safety Report 9980908 (Version 1)
Quarter: 2014Q1

REPORT INFORMATION
  Report Type: Spontaneous
  Country: US (occurrence: None)
  Receive Date: 20140306
  Receipt Date: 20140306
  Transmission Date: 20141002
  Serious: Yes (Other)
  Sender: FDA-Public Use
  Company Number: None

PATIENT
  Age: 65 Year
  Sex: Female
  Weight: 61.24 kg

DRUGS (1)
  1. SERTRALINE [Suspect]
     Indication: DEPRESSION
     Dosage: 1 DAILY ONCE DAILY

REACTIONS (7)
  - Depression [None]
  - Feeling of despair [None]
  - Fear [None]
  - Drug ineffective [None]
  - Product substitution issue [None]
  - Product substitution issue [None]
  - Product quality issue [None]
